FAERS Safety Report 11738319 (Version 1)
Quarter: 2015Q4

REPORT INFORMATION
  Report Type: Spontaneous
  Country: US (occurrence: US)
  Receive Date: 20151110
  Receipt Date: 20151110
  Transmission Date: 20160304
  Serious: No
  Sender: FDA-Public Use
  Company Number: US-ELI_LILLY_AND_COMPANY-US201207009274

PATIENT
  Age: 43 Year
  Sex: Male

DRUGS (18)
  1. IRON [Concomitant]
     Active Substance: IRON
  2. KEPPRA [Concomitant]
     Active Substance: LEVETIRACETAM
  3. VITAMIN C [Concomitant]
     Active Substance: ASCORBIC ACID
  4. NEXIUM [Concomitant]
     Active Substance: ESOMEPRAZOLE MAGNESIUM
  5. CARAFATE [Concomitant]
     Active Substance: SUCRALFATE
  6. ATIVAN [Concomitant]
     Active Substance: LORAZEPAM
  7. BISCODYL [Concomitant]
     Active Substance: BISACODYL
  8. SEROQUEL [Concomitant]
     Active Substance: QUETIAPINE FUMARATE
  9. FORTEO [Suspect]
     Active Substance: TERIPARATIDE
     Indication: OSTEOPENIA
     Dosage: 20 UG, QD
     Dates: end: 20120728
  10. TEGRETOL [Concomitant]
     Active Substance: CARBAMAZEPINE
  11. MIRALAX [Concomitant]
     Active Substance: POLYETHYLENE GLYCOL 3350
  12. MULTIVITAMIN [Concomitant]
     Active Substance: VITAMINS
  13. REGLAN [Concomitant]
     Active Substance: METOCLOPRAMIDE HYDROCHLORIDE
  14. CALCIUM [Concomitant]
     Active Substance: CALCIUM
  15. ARGINAID [Concomitant]
  16. VITAMIN D [Concomitant]
     Active Substance: CHOLECALCIFEROL
  17. COLACE [Concomitant]
     Active Substance: DOCUSATE SODIUM
  18. HYOSCYAMINE. [Concomitant]
     Active Substance: HYOSCYAMINE

REACTIONS (3)
  - Off label use [Unknown]
  - Accidental overdose [Unknown]
  - Vomiting [Unknown]

NARRATIVE: CASE EVENT DATE: 20120728
